FAERS Safety Report 9893640 (Version 2)
Quarter: 2014Q1

REPORT INFORMATION
  Report Type: Spontaneous
  Country: US (occurrence: US)
  Receive Date: 20140213
  Receipt Date: 20140224
  Transmission Date: 20141002
  Serious: Yes (Other)
  Sender: FDA-Public Use
  Company Number: US-TARO-2014P1001013

PATIENT
  Age: 65 Year
  Sex: Male
  Weight: 90.72 kg

DRUGS (1)
  1. FLUOCINONIDE CREAM USP 0.05% [Suspect]
     Indication: CUTANEOUS LUPUS ERYTHEMATOSUS
     Route: 061
     Dates: start: 1999, end: 20140203

REACTIONS (2)
  - Intraocular pressure increased [Unknown]
  - Ocular hypertension [Unknown]
